FAERS Safety Report 7677048-7 (Version None)
Quarter: 2011Q3

REPORT INFORMATION
  Report Type: 
  Country: None (occurrence: None)
  Receive Date: 20110811
  Receipt Date: 20110801
  Transmission Date: 20111222
  Serious: Yes (Other)
  Sender: FDA-Public Use
  Company Number: IT-ROCHE-793416

PATIENT
  Age: 14 Year
  Sex: Male

DRUGS (3)
  1. SUNITINIB MALATE [Suspect]
     Indication: METASTATIC RENAL CELL CARCINOMA
     Dosage: FOR 4 WEEKS WITH A 2-WEEK REST PERIOD TEMPORARILY WITHHELD
     Route: 048
  2. AVASTIN [Suspect]
     Indication: METASTATIC RENAL CELL CARCINOMA
     Dosage: EVERY OTHER WEEK
     Route: 042
  3. SUNITINIB MALATE [Suspect]
     Route: 048

REACTIONS (2)
  - HYPOTHYROIDISM [None]
  - HYPERTENSION [None]
